FAERS Safety Report 5880373-3 (Version None)
Quarter: 2008Q3

REPORT INFORMATION
  Report Type: 
  Country: None (occurrence: None)
  Receive Date: 20080912
  Receipt Date: 20080717
  Transmission Date: 20090109
  Serious: No
  Sender: FDA-Public Use
  Company Number: US-ABBOTT-07P-163-0431454-00

PATIENT
  Sex: Female
  Weight: 79.45 kg

DRUGS (4)
  1. HUMIRA [Suspect]
     Indication: RHEUMATOID ARTHRITIS
     Route: 058
     Dates: start: 20070601, end: 20071102
  2. HUMIRA [Suspect]
     Route: 058
     Dates: start: 20071102, end: 20080201
  3. HUMIRA [Suspect]
     Route: 058
     Dates: start: 20080201, end: 20080613
  4. LISINOPRIL [Concomitant]
     Indication: HYPERTENSION
     Route: 048

REACTIONS (10)
  - ANOREXIA [None]
  - ARTHRALGIA [None]
  - DRUG INEFFECTIVE [None]
  - FATIGUE [None]
  - JOINT SWELLING [None]
  - ORAL DISCOMFORT [None]
  - ORAL PAIN [None]
  - SENSITIVITY OF TEETH [None]
  - STOMATITIS [None]
  - WEIGHT DECREASED [None]
